FAERS Safety Report 10182141 (Version 1)
Quarter: 2014Q2

REPORT INFORMATION
  Report Type: Spontaneous
  Country: BG (occurrence: BG)
  Receive Date: 20140520
  Receipt Date: 20140520
  Transmission Date: 20141212
  Serious: Yes (Other)
  Sender: FDA-Public Use
  Company Number: BG-ROCHE-1402359

PATIENT
  Age: 78 Year
  Sex: Female
  Weight: 67 kg

DRUGS (7)
  1. MIRCERA [Suspect]
     Indication: ANAEMIA
     Dosage: SECOND DOSE ON 28/MAR/2014
     Route: 058
     Dates: start: 20140228
  2. KARDIKET [Concomitant]
     Indication: MYOCARDIAL ISCHAEMIA
     Route: 048
  3. QUINIDINE [Concomitant]
     Indication: ARRHYTHMIA
     Route: 048
  4. TORVACARD [Concomitant]
     Indication: HYPERLIPIDAEMIA
     Route: 048
  5. EUTHYROX [Concomitant]
     Indication: HYPOTHYROIDISM
     Route: 048
  6. CAVINTON FORTE [Concomitant]
     Indication: ANGIOPATHY
     Route: 065
  7. FERRO-FOLGAMMA [Concomitant]
     Indication: ANAEMIA
     Route: 048
     Dates: start: 20140115

REACTIONS (1)
  - Autoimmune haemolytic anaemia [Recovered/Resolved]
